FAERS Safety Report 23150048 (Version 2)
Quarter: 2023Q4

REPORT INFORMATION
  Report Type: Spontaneous
  Country: CN (occurrence: CN)
  Receive Date: 20231106
  Receipt Date: 20231109
  Transmission Date: 20240109
  Serious: Yes (Other)
  Sender: FDA-Public Use
  Company Number: CN-BAUSCH-BL-2023-016257

PATIENT
  Age: 86 Year
  Sex: Male

DRUGS (5)
  1. DEXAMETHASONE [Suspect]
     Active Substance: DEXAMETHASONE
     Indication: Diffuse large B-cell lymphoma stage IV
     Dosage: DAY 1-5, R-MINICHOP TWO CYCLES
     Route: 065
     Dates: start: 202104, end: 2021
  2. RITUXIMAB [Suspect]
     Active Substance: RITUXIMAB
     Indication: Diffuse large B-cell lymphoma stage IV
     Dosage: DAY 0, R-MINICHOP TWO CYCLES
     Route: 065
     Dates: start: 202104, end: 2021
  3. IFOSFAMIDE [Suspect]
     Active Substance: IFOSFAMIDE
     Indication: Diffuse large B-cell lymphoma stage IV
     Dosage: DAY 1-2, R-MINICHOP TWO CYCLES
     Route: 065
     Dates: start: 202104, end: 2021
  4. DOXORUBICIN HYDROCHLORIDE [Suspect]
     Active Substance: DOXORUBICIN HYDROCHLORIDE
     Indication: Diffuse large B-cell lymphoma stage IV
     Dosage: DAY 1, R-MINICHOP TWO CYCLES
     Route: 065
     Dates: start: 202104, end: 2021
  5. VINDESINE [Suspect]
     Active Substance: VINDESINE
     Indication: Diffuse large B-cell lymphoma stage IV
     Dosage: DAY 1, R-MINICHOP TWO CYCLES
     Route: 065
     Dates: start: 202104, end: 2021

REACTIONS (3)
  - Myelosuppression [Unknown]
  - Pneumonia [Unknown]
  - Therapy partial responder [Unknown]

NARRATIVE: CASE EVENT DATE: 20210101
